FAERS Safety Report 5692517-7 (Version None)
Quarter: 2008Q2

REPORT INFORMATION
  Report Type: 
  Country: None (occurrence: None)
  Receive Date: 20080328
  Receipt Date: 20071122
  Transmission Date: 20081010
  Serious: Yes (Other)
  Sender: FDA-Public Use
  Company Number: 43036

PATIENT
  Age: 60 Year
  Sex: Male

DRUGS (1)
  1. ADRIAMYCIN PFS [Suspect]
     Indication: MANTLE CELL LYMPHOMA
     Dosage: 33MG INTRAVENOUSLY OVER 24 HO
     Route: 042
     Dates: start: 20071121

REACTIONS (2)
  - ILL-DEFINED DISORDER [None]
  - NAUSEA [None]
